FAERS Safety Report 8495580-3 (Version None)
Quarter: 2012Q3

REPORT INFORMATION
  Report Type: 
  Country: None (occurrence: None)
  Receive Date: 20120709
  Receipt Date: 20120706
  Transmission Date: 20120928
  Serious: Yes (Hospitalization, Other)
  Sender: FDA-Public Use
  Company Number: US-ROCHE-1054732

PATIENT
  Sex: Female

DRUGS (5)
  1. PEGASYS [Suspect]
     Indication: HEPATITIS C
     Route: 065
     Dates: start: 20120227, end: 20120625
  2. COPEGUS [Suspect]
     Indication: HEPATITIS C
     Dosage: DOSE : DIVIDED DOSES
     Route: 065
     Dates: start: 20120227, end: 20120625
  3. COPEGUS [Suspect]
     Dosage: DOSE : DIVIDED DOSES
     Route: 065
  4. TELAPREVIR [Suspect]
     Indication: HEPATITIS C
     Route: 065
     Dates: start: 20120227, end: 20120529
  5. COPEGUS [Suspect]
     Dosage: DOSE : DIVIDED DOSES
     Route: 065

REACTIONS (11)
  - PLATELET COUNT DECREASED [None]
  - HAEMOGLOBIN DECREASED [None]
  - ANAEMIA [None]
  - ANORECTAL DISCOMFORT [None]
  - FULL BLOOD COUNT DECREASED [None]
  - LOSS OF CONSCIOUSNESS [None]
  - PRURITUS [None]
  - PANCREATITIS [None]
  - SYNCOPE [None]
  - TRANSIENT ISCHAEMIC ATTACK [None]
  - MUSCULAR WEAKNESS [None]
